FAERS Safety Report 16361699 (Version 3)
Quarter: 2020Q3

REPORT INFORMATION
  Report Type: Spontaneous
  Country: FR (occurrence: FR)
  Receive Date: 20190528
  Receipt Date: 20190613
  Transmission Date: 20201104
  Serious: Yes (Hospitalization, Other)
  Sender: FDA-Public Use
  Company Number: FR-TEVA-2019-FR-1056573

PATIENT
  Age: 63 Year
  Sex: Female

DRUGS (14)
  1. BACTRIM [Suspect]
     Active Substance: SULFAMETHOXAZOLE\TRIMETHOPRIM
     Indication: PRODUCT USED FOR UNKNOWN INDICATION
     Dosage: 3 TID
     Route: 042
     Dates: start: 20190204, end: 20190208
  2. EFFEXOR [Concomitant]
     Active Substance: VENLAFAXINE HYDROCHLORIDE
     Indication: DEPRESSION
     Dosage: 38 MG, 1X/DAY
     Route: 048
     Dates: start: 201707
  3. PARACETAMOL [Concomitant]
     Active Substance: ACETAMINOPHEN
     Indication: PROPHYLAXIS
     Dosage: 1 G,  UNK
     Route: 048
     Dates: start: 20190205, end: 20190208
  4. GABAPENTIN. [Suspect]
     Active Substance: GABAPENTIN
     Indication: TOXIC SKIN ERUPTION
     Dosage: 300 MG, 1X/DAY
     Route: 048
     Dates: start: 20190205
  5. MCS110 [Suspect]
     Active Substance: LACNOTUZUMAB
     Indication: NEOPLASM MALIGNANT
     Dosage: 8 MG/KG, Q3W
     Route: 042
     Dates: start: 20181011, end: 20181227
  6. MACROGOL [Concomitant]
     Active Substance: POLYETHYLENE GLYCOLS
     Indication: PROPHYLAXIS
     Dosage: UNK, PRN
     Route: 048
     Dates: start: 20190205
  7. LANSOPRAZOLE. [Suspect]
     Active Substance: LANSOPRAZOLE
     Indication: PROPHYLAXIS
     Dosage: 60 MG, UNK
     Route: 065
  8. BACTRIM [Suspect]
     Active Substance: SULFAMETHOXAZOLE\TRIMETHOPRIM
     Dosage: 1 DF, 3X/DAY (Q8HR)
     Route: 042
     Dates: start: 20190131, end: 20190203
  9. PDR001 [Suspect]
     Active Substance: SPARTALIZUMAB
     Indication: NEOPLASM MALIGNANT
     Dosage: 300 MG, Q3W
     Route: 042
     Dates: start: 20181011, end: 20181227
  10. PREDNISONE. [Concomitant]
     Active Substance: PREDNISONE
     Indication: PNEUMONITIS
     Dosage: 80 MG, 1X/DAY
     Route: 048
     Dates: start: 20190206, end: 20190208
  11. LANSOPRAZOLE. [Suspect]
     Active Substance: LANSOPRAZOLE
     Indication: ABDOMINAL PAIN UPPER
     Dosage: 15 MG, 1X/DAY
     Route: 048
     Dates: start: 20190205, end: 20190208
  12. NEURONTIN [Concomitant]
     Active Substance: GABAPENTIN
     Indication: TOXIC SKIN ERUPTION
     Dosage: 300 MG, 1X/DAY
     Route: 048
     Dates: start: 20190205
  13. RAMIPRIL. [Concomitant]
     Active Substance: RAMIPRIL
     Indication: HYPERTENSION
     Dosage: UNK, 1X/DAY
     Route: 048
     Dates: start: 201805
  14. PREDNISONE. [Concomitant]
     Active Substance: PREDNISONE
     Indication: PNEUMONIA

REACTIONS (2)
  - Toxic skin eruption [Recovered/Resolved]
  - Urinary tract infection [Recovered/Resolved]

NARRATIVE: CASE EVENT DATE: 20190211
